FAERS Safety Report 6510935-1 (Version None)
Quarter: 2009Q4

REPORT INFORMATION
  Report Type: 
  Country: None (occurrence: None)
  Receive Date: 20091222
  Receipt Date: 20090204
  Transmission Date: 20100525
  Serious: No
  Sender: FDA-Public Use
  Company Number: US-ASTRAZENECA-2009UW03300

PATIENT
  Age: 24217 Day
  Sex: Female

DRUGS (1)
  1. CRESTOR [Suspect]
     Route: 048
     Dates: start: 20081204, end: 20090121

REACTIONS (3)
  - BACK PAIN [None]
  - MUSCLE SPASMS [None]
  - PARAESTHESIA [None]
